FAERS Safety Report 5903738-X (Version None)
Quarter: 2008Q3

REPORT INFORMATION
  Report Type: 
  Country: None (occurrence: None)
  Receive Date: 20080930
  Receipt Date: 20080918
  Transmission Date: 20090109
  Serious: Yes (Other)
  Sender: FDA-Public Use
  Company Number: US-PFIZER INC-2008079939

PATIENT
  Age: 68 Year
  Sex: Female
  Weight: 71 kg

DRUGS (1)
  1. SU-011,248 [Suspect]
     Indication: OVARIAN EPITHELIAL CANCER
     Dosage: DAILY DOSE:37.5MG-FREQ:QD
     Route: 048
     Dates: start: 20080417, end: 20080725

REACTIONS (1)
  - HAEMORRHOIDS [None]
